FAERS Safety Report 25956804 (Version 2)
Quarter: 2025Q4

REPORT INFORMATION
  Report Type: Spontaneous
  Country: EU (occurrence: EU)
  Receive Date: 20251024
  Receipt Date: 20251110
  Transmission Date: 20260118
  Serious: Yes (Other)
  Sender: TEVA
  Company Number: EU-TEVA-VS-3384558

PATIENT
  Age: 71 Year
  Sex: Female

DRUGS (8)
  1. ASPIRIN [Suspect]
     Active Substance: ASPIRIN
     Indication: Antiplatelet therapy
     Dosage: FOR 2-3 YEARS
     Route: 065
  2. METFORMIN [Suspect]
     Active Substance: METFORMIN HYDROCHLORIDE
     Indication: Type 2 diabetes mellitus
     Route: 065
  3. LEVOTHYROXINE [Concomitant]
     Active Substance: LEVOTHYROXINE
     Indication: Toxic goitre
     Route: 065
  4. IVABRADINE [Concomitant]
     Active Substance: IVABRADINE
     Indication: Product used for unknown indication
     Dosage: HALF A TABLET; FOR 5 TO 6 MONTHS
     Route: 065
  5. AMLODIPINE [Suspect]
     Active Substance: AMLODIPINE BESYLATE
     Indication: Hypertension
     Dosage: 5 MG (HALF A TABLET TWICE DAILY); FOR 5-6 MONTHS
     Route: 065
  6. AMLODIPINE\ATORVASTATIN\PERINDOPRIL [Suspect]
     Active Substance: AMLODIPINE\ATORVASTATIN\PERINDOPRIL
     Indication: Hypertension
     Dosage: 20 MG/10 MG/5 MG ONCE MORNINGS FOR 2-3 YEARS
     Route: 065
  7. CHLORTHALIDONE [Suspect]
     Active Substance: CHLORTHALIDONE
     Indication: Hypertension
     Dosage: ONCE MORNING FROM 5-6 MONTHS
     Route: 065
  8. ALLOPURINOL [Concomitant]
     Active Substance: ALLOPURINOL
     Indication: Product used for unknown indication
     Route: 065

REACTIONS (2)
  - Malignant melanoma [Unknown]
  - Photosensitivity reaction [Unknown]
